FAERS Safety Report 25400202 (Version 4)
Quarter: 2025Q4

REPORT INFORMATION
  Report Type: Report from Study
  Country: US (occurrence: US)
  Receive Date: 20250605
  Receipt Date: 20251105
  Transmission Date: 20260118
  Serious: No
  Sender: JOHNSON AND JOHNSON
  Company Number: US-JNJFOC-20250525079

PATIENT
  Age: 44 Year
  Sex: Female

DRUGS (1)
  1. TREMFYA [Suspect]
     Active Substance: GUSELKUMAB
     Indication: Crohn^s disease
     Dosage: STRENGTH: 200.00 MG / 2.00 ML
     Route: 058
     Dates: start: 20250422

REACTIONS (4)
  - Device leakage [Unknown]
  - Accidental exposure to product [Unknown]
  - Injection site bruising [Unknown]
  - Underdose [Unknown]

NARRATIVE: CASE EVENT DATE: 20250520
